FAERS Safety Report 10151222 (Version 1)
Quarter: 2014Q2

REPORT INFORMATION
  Report Type: Spontaneous
  Country: US (occurrence: US)
  Receive Date: 20140502
  Receipt Date: 20140502
  Transmission Date: 20141212
  Serious: No
  Sender: FDA-Public Use
  Company Number: US-ASTRAZENECA-2013SE90817

PATIENT
  Sex: Male

DRUGS (2)
  1. PRILOSEC OTC [Suspect]
     Indication: GASTROOESOPHAGEAL REFLUX DISEASE
     Dosage: UNKNOWN, 1 /DAY
     Route: 048
  2. CARDIOVASCULAR SYSTEM DRUGS [Concomitant]
     Dosage: UNKOWN

REACTIONS (4)
  - Arthralgia [Unknown]
  - Lethargy [Unknown]
  - Malaise [Unknown]
  - Off label use [Unknown]
